FAERS Safety Report 15432198 (Version 1)
Quarter: 2018Q3

REPORT INFORMATION
  Report Type: Spontaneous
  Country: US (occurrence: US)
  Receive Date: 20180926
  Receipt Date: 20180926
  Transmission Date: 20181010
  Serious: Yes (Death)
  Sender: FDA-Public Use
  Company Number: US-MEDICURE INC.-2055380

PATIENT
  Age: 40 Year
  Sex: Male

DRUGS (4)
  1. KENGREAL [Concomitant]
     Active Substance: CANGRELOR
  2. AGGRASTAT [Suspect]
     Active Substance: TIROFIBAN HYDROCHLORIDE
     Indication: ANTIPLATELET THERAPY
     Route: 022
  3. AGGRASTAT [Suspect]
     Active Substance: TIROFIBAN HYDROCHLORIDE
     Route: 041
  4. BRILINTA [Concomitant]
     Active Substance: TICAGRELOR

REACTIONS (2)
  - Cardiac arrest [Fatal]
  - Thrombosis [Fatal]
